FAERS Safety Report 6506708-6 (Version None)
Quarter: 2009Q4

REPORT INFORMATION
  Report Type: 
  Country: None (occurrence: None)
  Receive Date: 20091216
  Receipt Date: 20080911
  Transmission Date: 20100525
  Serious: Yes (Hospitalization)
  Sender: FDA-Public Use
  Company Number: 20085255

PATIENT
  Sex: Male

DRUGS (1)
  1. LIORESAL [Suspect]
     Indication: MUSCLE SPASTICITY
     Dosage: 725 - 916 MCG, DAILY, INTRATHECAL
     Route: 037

REACTIONS (9)
  - AGITATION [None]
  - DRUG INEFFECTIVE [None]
  - HYPERTONIA [None]
  - HYPOTONIA [None]
  - MEDICAL DEVICE COMPLICATION [None]
  - OVERDOSE [None]
  - RESPIRATORY DISORDER [None]
  - SOMNOLENCE [None]
  - UNDERDOSE [None]
